FAERS Safety Report 7156378-1 (Version None)
Quarter: 2010Q4

REPORT INFORMATION
  Report Type: 
  Country: None (occurrence: None)
  Receive Date: 20101214
  Receipt Date: 20101201
  Transmission Date: 20110411
  Serious: Yes (Other)
  Sender: FDA-Public Use
  Company Number: US-ROCHE-718937

PATIENT
  Sex: Female
  Weight: 55.3 kg

DRUGS (6)
  1. ACCUTANE [Suspect]
     Indication: ACNE
     Route: 065
     Dates: start: 20050707, end: 20050901
  2. ACCUTANE [Suspect]
     Route: 065
     Dates: start: 20050901, end: 20051006
  3. ACCUTANE [Suspect]
     Dosage: 50 MG ALTERNATING WITH 60 MG DAILY
     Route: 065
     Dates: start: 20051006, end: 20051103
  4. ACCUTANE [Suspect]
     Route: 065
     Dates: start: 20051103, end: 20051207
  5. ACCUTANE [Suspect]
     Dosage: 55 MG ALTERNATING WITH 60 MG DAILY
     Route: 065
     Dates: start: 20051207, end: 20051217
  6. TYLENOL (CAPLET) [Concomitant]

REACTIONS (13)
  - ABSCESS INTESTINAL [None]
  - ANAL ABSCESS [None]
  - ANAL STENOSIS [None]
  - BLOOD TRIGLYCERIDES INCREASED [None]
  - BONE DENSITY DECREASED [None]
  - CROHN'S DISEASE [None]
  - DEPRESSION [None]
  - FRACTURE [None]
  - GASTROINTESTINAL INJURY [None]
  - ILEAL FISTULA [None]
  - INFLAMMATORY BOWEL DISEASE [None]
  - MALNUTRITION [None]
  - WEIGHT DECREASED [None]
